FAERS Safety Report 14871730 (Version 3)
Quarter: 2018Q3

REPORT INFORMATION
  Report Type: Spontaneous
  Country: US (occurrence: US)
  Receive Date: 20180509
  Receipt Date: 20180711
  Transmission Date: 20181010
  Serious: Yes (Life-Threatening, Hospitalization, Other)
  Sender: FDA-Public Use
  Company Number: US-BAYER-2018-023771

PATIENT
  Age: 68 Year
  Sex: Male

DRUGS (7)
  1. BAYER ASPIRIN [Suspect]
     Active Substance: ASPIRIN
     Indication: ATRIAL FIBRILLATION
     Dosage: UNK
     Route: 065
  2. TOPROL XL [Concomitant]
     Active Substance: METOPROLOL SUCCINATE
     Indication: ATRIAL FLUTTER
     Dosage: UNK
     Route: 065
  3. XARELTO [Suspect]
     Active Substance: RIVAROXABAN
     Indication: ATRIAL FLUTTER
  4. RAMIPRIL. [Concomitant]
     Active Substance: RAMIPRIL
     Indication: PRODUCT USED FOR UNKNOWN INDICATION
     Dosage: UNK
     Route: 065
  5. XARELTO [Suspect]
     Active Substance: RIVAROXABAN
     Indication: CEREBROVASCULAR ACCIDENT PROPHYLAXIS
  6. RAMIPRIL. [Concomitant]
     Active Substance: RAMIPRIL
     Indication: PRODUCT USED FOR UNKNOWN INDICATION
     Route: 065
  7. XARELTO [Suspect]
     Active Substance: RIVAROXABAN
     Indication: ATRIAL FIBRILLATION
     Dosage: UNK
     Route: 048
     Dates: start: 20150505, end: 20160312

REACTIONS (24)
  - Hemiplegia [Unknown]
  - Muscular weakness [Unknown]
  - Depression [Unknown]
  - Respiratory distress [Unknown]
  - Decreased immune responsiveness [Unknown]
  - Erectile dysfunction [Unknown]
  - Anxiety [Unknown]
  - Endotracheal intubation [Unknown]
  - Fear of death [Unknown]
  - Nausea [Unknown]
  - Insomnia [Unknown]
  - Surgery [Unknown]
  - Dysphagia [Unknown]
  - Brain injury [Unknown]
  - Myalgia [Unknown]
  - Scar [Unknown]
  - Atrophy [Unknown]
  - Haemorrhagic stroke [Unknown]
  - Decreased appetite [Unknown]
  - Headache [Unknown]
  - Fatigue [Unknown]
  - Weight increased [Unknown]
  - Arthralgia [Unknown]
  - Deformity [Unknown]

NARRATIVE: CASE EVENT DATE: 20160312
